FAERS Safety Report 7892938-8 (Version None)
Quarter: 2011Q4

REPORT INFORMATION
  Report Type: 
  Country: None (occurrence: None)
  Receive Date: 20111104
  Receipt Date: 20111101
  Transmission Date: 20120403
  Serious: Yes (Other)
  Sender: FDA-Public Use
  Company Number: US-BAYER-2011-106231

PATIENT

DRUGS (4)
  1. OMNISCAN [Suspect]
     Indication: IMAGING PROCEDURE
     Dosage: UNK
     Dates: start: 20060508
  2. MAGNEVIST [Suspect]
     Indication: IMAGING PROCEDURE
     Dosage: UNK
     Dates: start: 20060508
  3. OMNISCAN [Suspect]
     Dosage: UNK
     Dates: start: 20061101
  4. MAGNEVIST [Suspect]
     Dosage: UNK
     Dates: start: 20061101

REACTIONS (6)
  - PAIN [None]
  - EMOTIONAL DISTRESS [None]
  - NEPHROGENIC SYSTEMIC FIBROSIS [None]
  - GENERAL PHYSICAL HEALTH DETERIORATION [None]
  - ANXIETY [None]
  - INJURY [None]
